FAERS Safety Report 14169373 (Version 2)
Quarter: 2017Q4

REPORT INFORMATION
  Report Type: Report from Study
  Country: US (occurrence: US)
  Receive Date: 20171107
  Receipt Date: 20171221
  Transmission Date: 20180321
  Serious: Yes (Hospitalization)
  Sender: FDA-Public Use
  Company Number: US-VIFOR (INTERNATIONAL) INC.-VIT-2017-07960

PATIENT
  Age: 89 Year
  Sex: Male
  Weight: 52.16 kg

DRUGS (39)
  1. VELTASSA [Suspect]
     Active Substance: PATIROMER
     Indication: HYPERKALAEMIA
     Route: 048
     Dates: start: 20170708, end: 20171008
  2. FUROSEMIDE. [Concomitant]
     Active Substance: FUROSEMIDE
     Dates: start: 20170920
  3. FINASTERIDE. [Concomitant]
     Active Substance: FINASTERIDE
     Dates: start: 20170621
  4. AMLODIPINE BESILATE [Concomitant]
     Active Substance: AMLODIPINE BESYLATE
     Dates: start: 20161202
  5. FLOMAX [Concomitant]
     Active Substance: TAMSULOSIN HYDROCHLORIDE
  6. SODIUM BICARBONATE. [Concomitant]
     Active Substance: SODIUM BICARBONATE
     Dates: start: 20170621
  7. LASIX [Concomitant]
     Active Substance: FUROSEMIDE
     Dates: start: 20170621
  8. SLOW-MAG [Concomitant]
     Active Substance: MAGNESIUM CHLORIDE
     Dates: start: 20170501
  9. AMLODIPINE BESILATE [Concomitant]
     Active Substance: AMLODIPINE BESYLATE
     Dates: start: 20171106
  10. VALSARTAN. [Concomitant]
     Active Substance: VALSARTAN
     Dates: start: 20170123
  11. PANTOPRAZOLE [Concomitant]
     Active Substance: PANTOPRAZOLE
     Dates: start: 20171206
  12. FIBROLAX [Concomitant]
  13. SODIUM BICARBONATE. [Concomitant]
     Active Substance: SODIUM BICARBONATE
     Dates: start: 20170920
  14. SLOW-MAG [Concomitant]
     Active Substance: MAGNESIUM CHLORIDE
     Dates: start: 20170722
  15. CARVEDILOL. [Concomitant]
     Active Substance: CARVEDILOL
     Dates: start: 20171201
  16. CIPROFLOXACIN. [Concomitant]
     Active Substance: CIPROFLOXACIN
     Dates: start: 20171024
  17. GEMFIBROZIL. [Concomitant]
     Active Substance: GEMFIBROZIL
     Dates: start: 20161215
  18. PANTOPRAZOLE [Concomitant]
     Active Substance: PANTOPRAZOLE
     Dates: start: 20161222
  19. FUROSEMIDE. [Concomitant]
     Active Substance: FUROSEMIDE
     Dates: start: 20170613
  20. AMLODIPINE BESILATE [Concomitant]
     Active Substance: AMLODIPINE BESYLATE
     Dates: start: 20170621
  21. PANTOPRAZOLE [Concomitant]
     Active Substance: PANTOPRAZOLE
     Dates: start: 20170621
  22. KAYEXALATE [Concomitant]
     Active Substance: SODIUM POLYSTYRENE SULFONATE
     Dates: start: 20170621
  23. HYDROCHLOROTHIAZIDE~~VALSARTAN [Concomitant]
     Dosage: 160-12.5
     Dates: start: 20170621
  24. DOXAZOSIN [Concomitant]
     Active Substance: DOXAZOSIN\DOXAZOSIN MESYLATE
     Dates: start: 20171023
  25. CLINDAMYCIN. [Concomitant]
     Active Substance: CLINDAMYCIN
  26. VELTASSA [Suspect]
     Active Substance: PATIROMER
     Dates: start: 20171009
  27. FINASTERIDE. [Concomitant]
     Active Substance: FINASTERIDE
     Dates: start: 20170302
  28. GEMFIBROZIL. [Concomitant]
     Active Substance: GEMFIBROZIL
     Dates: start: 20170621
  29. PROCRIT [Concomitant]
     Active Substance: ERYTHROPOIETIN
     Dates: start: 20170621
  30. DOXAZOSIN [Concomitant]
     Active Substance: DOXAZOSIN\DOXAZOSIN MESYLATE
     Dates: start: 20161205
  31. BUMETANIDE. [Concomitant]
     Active Substance: BUMETANIDE
     Dates: start: 20171017
  32. SPIRONOLACTONE. [Concomitant]
     Active Substance: SPIRONOLACTONE
     Dates: start: 20171201
  33. POT CL [Concomitant]
     Dates: start: 20171201
  34. CARDURA [Concomitant]
     Active Substance: DOXAZOSIN MESYLATE
     Dates: start: 20170621
  35. COLECALCIFEROL [Concomitant]
     Active Substance: CHOLECALCIFEROL
  36. COLECALCIFEROL [Concomitant]
     Active Substance: CHOLECALCIFEROL
     Dates: start: 20170621
  37. FIBERCON [Concomitant]
     Active Substance: CALCIUM POLYCARBOPHIL
     Dates: start: 20170621
  38. GEMFIBROZIL. [Concomitant]
     Active Substance: GEMFIBROZIL
     Dates: start: 20171025
  39. SLOW-MAG [Concomitant]
     Active Substance: MAGNESIUM CHLORIDE
     Dates: start: 20170621

REACTIONS (6)
  - Flatulence [Recovering/Resolving]
  - Pulmonary oedema [Recovering/Resolving]
  - Faeces discoloured [Recovering/Resolving]
  - Cardiac failure [Recovering/Resolving]
  - Joint swelling [Recovering/Resolving]
  - Oedema [Recovering/Resolving]

NARRATIVE: CASE EVENT DATE: 2017
